FAERS Safety Report 4647232-5 (Version None)
Quarter: 2005Q2

REPORT INFORMATION
  Report Type: 
  Country: None (occurrence: None)
  Receive Date: 20050426
  Receipt Date: 20050413
  Transmission Date: 20051028
  Serious: Yes (Hospitalization, Other)
  Sender: FDA-Public Use
  Company Number: 2005061164

PATIENT
  Age: 86 Year
  Sex: Female

DRUGS (3)
  1. TRIAZOLAM [Suspect]
     Indication: INSOMNIA
     Dosage: ORAL
     Route: 048
     Dates: start: 20020901, end: 20030301
  2. METHYLPREDNISOLONE SODIUM SUCCINATE [Suspect]
     Indication: TOXIC EPIDERMAL NECROLYSIS
     Dosage: 1000 MG, INTRAVENOUS
     Route: 042
     Dates: start: 20030317, end: 20030319
  3. PROBENECID [Suspect]
     Indication: HYPERURICAEMIA
     Dosage: ORAL
     Route: 048
     Dates: start: 20030208, end: 20030301

REACTIONS (21)
  - ANAEMIA [None]
  - BEDRIDDEN [None]
  - BLOOD ALBUMIN DECREASED [None]
  - BLOOD ALKALINE PHOSPHATASE INCREASED [None]
  - BLOOD LACTATE DEHYDROGENASE INCREASED [None]
  - BLOOD UREA INCREASED [None]
  - CANDIDA SEPSIS [None]
  - CATHETER RELATED INFECTION [None]
  - CHOLECYSTITIS ACUTE [None]
  - CLOSTRIDIUM COLITIS [None]
  - DIVERTICULUM INTESTINAL HAEMORRHAGIC [None]
  - GASTROINTESTINAL HAEMORRHAGE [None]
  - HYPOPROTEINAEMIA [None]
  - LYMPHOCYTE PERCENTAGE DECREASED [None]
  - MONOCYTE PERCENTAGE DECREASED [None]
  - MUSCULAR WEAKNESS [None]
  - PLEURAL EFFUSION [None]
  - PNEUMONIA STAPHYLOCOCCAL [None]
  - SEPSIS [None]
  - TOXIC EPIDERMAL NECROLYSIS [None]
  - URINARY TRACT INFECTION [None]
